FAERS Safety Report 13190403 (Version 1)
Quarter: 2017Q1

REPORT INFORMATION
  Report Type: Other
  Country: NL (occurrence: NL)
  Receive Date: 20170206
  Receipt Date: 20170206
  Transmission Date: 20170428
  Serious: Yes (Life-Threatening, Other)
  Sender: FDA-Public Use
  Company Number: NL-ALSI-201700034

PATIENT
  Age: 53 Year
  Sex: Male

DRUGS (4)
  1. SEVOFLURANE. [Concomitant]
     Active Substance: SEVOFLURANE
  2. NOREPINEPHRINE [Concomitant]
     Active Substance: NOREPINEPHRINE\NOREPINEPHRINE BITARTRATE
  3. PROPOFOL. [Concomitant]
     Active Substance: PROPOFOL
  4. OXYGEN. [Suspect]
     Active Substance: OXYGEN
     Route: 055

REACTIONS (3)
  - Cardiac arrest [Unknown]
  - Subcutaneous emphysema [Unknown]
  - Pneumothorax [Unknown]
